FAERS Safety Report 10959876 (Version 1)
Quarter: 2015Q1

REPORT INFORMATION
  Report Type: Spontaneous
  Country: US (occurrence: US)
  Receive Date: 20150327
  Receipt Date: 20150327
  Transmission Date: 20150721
  Serious: No
  Sender: FDA-Public Use
  Company Number: US-009507513-1503USA005987

PATIENT
  Sex: Female

DRUGS (1)
  1. PRINIVIL [Suspect]
     Active Substance: LISINOPRIL
     Dosage: DAILY DOSE UNKNOWN
     Route: 048
     Dates: end: 2010

REACTIONS (1)
  - Drug hypersensitivity [Recovered/Resolved]
